FAERS Safety Report 7680117-9 (Version None)
Quarter: 2011Q3

REPORT INFORMATION
  Report Type: 
  Country: None (occurrence: None)
  Receive Date: 20110812
  Receipt Date: 20110801
  Transmission Date: 20111222
  Serious: Yes (Hospitalization)
  Sender: FDA-Public Use
  Company Number: FR-UCBSA-038096

PATIENT
  Sex: Male

DRUGS (6)
  1. LANSOPRAZOLE [Concomitant]
     Route: 048
     Dates: start: 20110623
  2. KEPPRA [Suspect]
     Indication: EPILEPSY
     Dosage: PREVIOUSLY, FROM 23-JUN-2011 TO 29-JUN-2011 1GM TWICE A DAY INTRAVENOUSLY
     Route: 048
     Dates: start: 20110629, end: 20110630
  3. AMOXICILLIN [Concomitant]
     Route: 042
     Dates: start: 20110623, end: 20110628
  4. ACETAMINOPHEN [Concomitant]
     Route: 042
     Dates: start: 20110623, end: 20110630
  5. ZOVIRAX [Concomitant]
     Route: 048
     Dates: start: 20110623, end: 20110628
  6. LOVENOX [Concomitant]
     Route: 048
     Dates: start: 20110623

REACTIONS (1)
  - TOXIC SKIN ERUPTION [None]
